FAERS Safety Report 24560939 (Version 1)
Quarter: 2024Q4

REPORT INFORMATION
  Report Type: Spontaneous
  Country: IT (occurrence: IT)
  Receive Date: 20241029
  Receipt Date: 20241029
  Transmission Date: 20250114
  Serious: Yes (Death, Hospitalization, Other)
  Sender: GRIFOLS
  Company Number: IT-IGSA-BIG0031163

PATIENT
  Age: 64 Year
  Sex: Male

DRUGS (1)
  1. PROLASTIN [Suspect]
     Active Substance: .ALPHA.1-PROTEINASE INHIBITOR HUMAN
     Indication: Alpha-1 antitrypsin deficiency
     Dosage: UNK
     Route: 042

REACTIONS (4)
  - Gastric cancer [Fatal]
  - Metastasis [Fatal]
  - Dyspnoea [Unknown]
  - Hypotonia [Unknown]
